FAERS Safety Report 9215103 (Version 2)
Quarter: 2013Q2

REPORT INFORMATION
  Report Type: Report from Study
  Country: None (occurrence: US)
  Receive Date: 20130405
  Receipt Date: 20130426
  Transmission Date: 20140414
  Serious: Yes (Hospitalization, Other)
  Sender: FDA-Public Use
  Company Number: US-ABBOTT-13P-163-1070077-00

PATIENT
  Age: 28 Year
  Sex: Female
  Weight: 53.12 kg

DRUGS (3)
  1. LUPRON DEPOT [Suspect]
     Indication: ENDOMETRIOSIS
     Dates: start: 201301
  2. FIORCET [Concomitant]
     Indication: MIGRAINE
  3. XANAX [Concomitant]
     Indication: ANXIETY

REACTIONS (3)
  - Arthrodesis [Recovering/Resolving]
  - Bone graft [Recovering/Resolving]
  - Medical device implantation [Recovering/Resolving]
